FAERS Safety Report 8173721-5 (Version None)
Quarter: 2012Q1

REPORT INFORMATION
  Report Type: 
  Country: None (occurrence: None)
  Receive Date: 20120229
  Receipt Date: 20120216
  Transmission Date: 20120608
  Serious: Yes (Hospitalization)
  Sender: FDA-Public Use
  Company Number: FR-SANOFI-AVENTIS-2012SA010278

PATIENT
  Age: 35 Year
  Sex: Male

DRUGS (5)
  1. ZOLPIDEM [Suspect]
     Indication: INSOMNIA
     Route: 048
     Dates: start: 20120103
  2. FOSFOMYCIN [Suspect]
     Route: 042
     Dates: start: 20111229
  3. IMIPENEM AND CILASTATIN SODIUM [Suspect]
     Route: 042
     Dates: start: 20111229, end: 20120120
  4. ACETAMINOPHEN [Suspect]
     Indication: PAIN
     Dosage: 2/8 HOUR
     Route: 048
     Dates: start: 20111229
  5. LEXOMIL [Suspect]
     Indication: ANXIETY
     Dosage: 1/4TAB-1/4TAB-1/2TAB
     Route: 048
     Dates: start: 20120102

REACTIONS (1)
  - NEUTROPENIA [None]
